FAERS Safety Report 11221095 (Version 1)
Quarter: 2015Q2

REPORT INFORMATION
  Report Type: Spontaneous
  Country: DE (occurrence: DE)
  Receive Date: 20150626
  Receipt Date: 20150626
  Transmission Date: 20150821
  Serious: Yes (Hospitalization)
  Sender: FDA-Public Use
  Company Number: DE-SA-2015SA090017

PATIENT
  Age: 18 Year
  Sex: Female

DRUGS (2)
  1. APIDRA [Suspect]
     Active Substance: INSULIN GLULISINE
     Indication: TYPE 1 DIABETES MELLITUS
     Route: 065
     Dates: start: 20150611, end: 20150611
  2. NOVORAPID [Concomitant]
     Active Substance: INSULIN ASPART

REACTIONS (5)
  - Blood glucose increased [Unknown]
  - Rash generalised [Recovered/Resolved]
  - Leukocytosis [Unknown]
  - Chest discomfort [Unknown]
  - Dyspnoea [Unknown]

NARRATIVE: CASE EVENT DATE: 20150611
